FAERS Safety Report 5844761-3 (Version None)
Quarter: 2008Q3

REPORT INFORMATION
  Report Type: 
  Country: None (occurrence: None)
  Receive Date: 20080814
  Receipt Date: 20080805
  Transmission Date: 20090109
  Serious: Yes (Hospitalization)
  Sender: FDA-Public Use
  Company Number: FR-JNJFOC-20080704656

PATIENT
  Sex: Male
  Weight: 60 kg

DRUGS (8)
  1. RISPERDAL [Suspect]
     Indication: AGITATION
     Route: 048
  2. RISPERDAL [Suspect]
     Indication: AUTISM
     Route: 048
  3. RISPERDAL [Suspect]
     Indication: ABNORMAL BEHAVIOUR
     Route: 048
  4. RIVOTRIL [Concomitant]
     Indication: AGITATION
     Route: 048
  5. RIVOTRIL [Concomitant]
     Indication: EPILEPSY
     Route: 048
  6. LAMICTAL [Concomitant]
     Indication: AGITATION
     Route: 048
  7. LAMICTAL [Concomitant]
     Indication: EPILEPSY
     Route: 048
  8. RECOMBINATE [Concomitant]
     Indication: HAEMOPHILIA
     Route: 042

REACTIONS (6)
  - DISTURBANCE IN ATTENTION [None]
  - FALL [None]
  - HAEMATOMA [None]
  - INTERMITTENT CLAUDICATION [None]
  - NEUROLEPTIC MALIGNANT SYNDROME [None]
  - SOMNOLENCE [None]
